FAERS Safety Report 20338207 (Version 2)
Quarter: 2023Q1

REPORT INFORMATION
  Report Type: Report from Study
  Country: US (occurrence: None)
  Receive Date: 20220115
  Receipt Date: 20230104
  Transmission Date: 20230417
  Serious: No
  Sender: FDA-Public Use
  Company Number: US-Merck Healthcare KGaA-9293021

PATIENT
  Age: 38 Year
  Sex: Female

DRUGS (2)
  1. REBIF [Suspect]
     Active Substance: INTERFERON BETA-1A
     Indication: Multiple sclerosis
     Dosage: THERAPY START DATE BEFORE 2020
     Route: 058
  2. REBIF [Suspect]
     Active Substance: INTERFERON BETA-1A
     Dosage: PREFILLED SYRINGE
     Route: 058
     Dates: start: 20210430

REACTIONS (3)
  - Headache [Unknown]
  - Dizziness [Unknown]
  - Product administration interrupted [Unknown]

NARRATIVE: CASE EVENT DATE: 20211201
